FAERS Safety Report 11481957 (Version 1)
Quarter: 2015Q3

REPORT INFORMATION
  Report Type: Spontaneous
  Country: US (occurrence: US)
  Receive Date: 20150909
  Receipt Date: 20150909
  Transmission Date: 20151125
  Serious: No
  Sender: FDA-Public Use
  Company Number: US-JAZZ-2014-US-016317

PATIENT
  Sex: Female

DRUGS (1)
  1. XYREM [Suspect]
     Active Substance: SODIUM OXYBATE
     Indication: NARCOLEPSY
     Dosage: 1.14 G, QD
     Route: 048
     Dates: start: 20141205

REACTIONS (4)
  - Nausea [Unknown]
  - Muscular weakness [Unknown]
  - Dizziness [Unknown]
  - Somnolence [Not Recovered/Not Resolved]
